FAERS Safety Report 19252897 (Version 2)
Quarter: 2023Q2

REPORT INFORMATION
  Report Type: Spontaneous
  Country: US (occurrence: US)
  Receive Date: 20210513
  Receipt Date: 20230601
  Transmission Date: 20230722
  Serious: No
  Sender: FDA-Public Use
  Company Number: US-UCBSA-2020020710

PATIENT

DRUGS (6)
  1. CIMZIA [Suspect]
     Active Substance: CERTOLIZUMAB PEGOL
     Indication: Psoriatic arthropathy
     Dosage: UNK
  2. CIMZIA [Suspect]
     Active Substance: CERTOLIZUMAB PEGOL
     Indication: Psoriasis
  3. HUMIRA [Concomitant]
     Active Substance: ADALIMUMAB
     Dosage: UNK
     Dates: start: 2014
  4. ENBREL [Concomitant]
     Active Substance: ETANERCEPT
  5. OTEZLA [Concomitant]
     Active Substance: APREMILAST
  6. COSENTYX [Concomitant]
     Active Substance: SECUKINUMAB
     Dosage: UNK, MONTHLY (QM)

REACTIONS (1)
  - Drug ineffective [Unknown]
